FAERS Safety Report 12397934 (Version 1)
Quarter: 2016Q2

REPORT INFORMATION
  Report Type: Spontaneous
  Country: US (occurrence: None)
  Receive Date: 20160523
  Receipt Date: 20160523
  Transmission Date: 20160815
  Serious: Yes (Hospitalization)
  Sender: FDA-Public Use
  Company Number: None

PATIENT
  Age: 67 Year
  Sex: Male
  Weight: 134.8 kg

DRUGS (1)
  1. METOPROLOL. [Suspect]
     Active Substance: METOPROLOL
     Indication: CORONARY ARTERIAL STENT INSERTION
     Route: 048
     Dates: start: 20141005, end: 20150903

REACTIONS (7)
  - Atrioventricular block first degree [None]
  - Exercise electrocardiogram abnormal [None]
  - Fatigue [None]
  - Syncope [None]
  - Angina pectoris [None]
  - Bradycardia [None]
  - Dizziness [None]

NARRATIVE: CASE EVENT DATE: 20160113
